FAERS Safety Report 16074469 (Version 1)
Quarter: 2019Q1

REPORT INFORMATION
  Report Type: Report from Study
  Country: CA (occurrence: CA)
  Receive Date: 20190314
  Receipt Date: 20190314
  Transmission Date: 20190418
  Serious: Yes (Hospitalization)
  Sender: FDA-Public Use
  Company Number: CA-ACTELION-A-NJ2019-187484

PATIENT
  Age: 56 Year
  Sex: Female
  Weight: 57.14 kg

DRUGS (18)
  1. PANTOLOC [Concomitant]
     Active Substance: PANTOPRAZOLE SODIUM
  2. ACETYLSALICYLIC ACID [Concomitant]
     Active Substance: ASPIRIN
     Dosage: 80 MG
  3. CALCIUM [Concomitant]
     Active Substance: CALCIUM
  4. LYRICA [Concomitant]
     Active Substance: PREGABALIN
  5. PROLIA [Concomitant]
     Active Substance: DENOSUMAB
     Dosage: TWICE A YEAR
  6. AMLODIPINE [Concomitant]
     Active Substance: AMLODIPINE BESYLATE
  7. TEGRETOL [Concomitant]
     Active Substance: CARBAMAZEPINE
  8. SYNTHROID [Concomitant]
     Active Substance: LEVOTHYROXINE SODIUM
  9. LASIX [Concomitant]
     Active Substance: FUROSEMIDE
  10. COUMADIN [Concomitant]
     Active Substance: WARFARIN SODIUM
  11. UPTRAVI [Suspect]
     Active Substance: SELEXIPAG
     Indication: PULMONARY HYPERTENSION
     Dosage: 800 MCG, BID
     Route: 048
     Dates: start: 20170403
  12. VITAMIN E [Concomitant]
     Active Substance: .ALPHA.-TOCOPHEROL
  13. SUPEUDOL [Concomitant]
     Active Substance: OXYCODONE HYDROCHLORIDE
     Dosage: 5 MG, QPM
  14. NAPROXEN. [Concomitant]
     Active Substance: NAPROXEN
  15. TRACLEER [Suspect]
     Active Substance: BOSENTAN
     Indication: PULMONARY HYPERTENSION
     Dosage: 125 MG, BID
     Route: 048
  16. ADEMPAS [Concomitant]
     Active Substance: RIOCIGUAT
  17. MOTILIUM [Concomitant]
     Active Substance: DOMPERIDONE
  18. SERAX [Concomitant]
     Active Substance: OXAZEPAM

REACTIONS (2)
  - Sepsis [Unknown]
  - Pyelonephritis [Unknown]

NARRATIVE: CASE EVENT DATE: 20190205
